FAERS Safety Report 4946789-4 (Version None)
Quarter: 2006Q1

REPORT INFORMATION
  Report Type: 
  Country: None (occurrence: None)
  Receive Date: 20060201
  Receipt Date: 20060201
  Transmission Date: 20060701
  Serious: No
  Sender: FDA-Public Use
  Company Number: 2005PV005856

PATIENT
  Age: 69 Year
  Sex: Male

DRUGS (2)
  1. BYETTA [Suspect]
     Indication: DIABETES MELLITUS NON-INSULIN-DEPENDENT
     Dosage: 5 MCG; BID; SC
     Route: 058
     Dates: start: 20051213, end: 20051201
  2. PREVACID [Concomitant]

REACTIONS (5)
  - DIARRHOEA [None]
  - ERUCTATION [None]
  - FLATULENCE [None]
  - INSOMNIA [None]
  - NAUSEA [None]
